FAERS Safety Report 7420696-X (Version None)
Quarter: 2011Q2

REPORT INFORMATION
  Report Type: 
  Country: None (occurrence: None)
  Receive Date: 20110418
  Receipt Date: 20101116
  Transmission Date: 20111010
  Serious: Yes (Hospitalization, Other)
  Sender: FDA-Public Use
  Company Number: US-BAYER-200941653NA

PATIENT
  Age: 23 Year
  Sex: Female
  Weight: 77.098 kg

DRUGS (13)
  1. FLUOXETINE [Concomitant]
     Indication: ANXIETY
     Dosage: UNK
     Dates: start: 20040101
  2. FLUOXETINE [Concomitant]
     Indication: DEPRESSION
  3. MIRTAZAPINE [Concomitant]
     Dosage: 30 MG, UNK
  4. YASMIN [Suspect]
     Dosage: UNK
     Dates: start: 20070703, end: 20080501
  5. YASMIN [Suspect]
     Dosage: UNK
     Dates: start: 20060308, end: 20060401
  6. LORAZEPAM [Concomitant]
     Indication: ANXIETY
     Dosage: UNK
     Dates: start: 20040101
  7. YASMIN [Suspect]
     Indication: ORAL CONTRACEPTION
     Dosage: UNK
     Dates: start: 20040603, end: 20040901
  8. BUPROPION HYDROCHLORIDE [Concomitant]
     Indication: ANXIETY
     Dosage: UNK
     Dates: start: 20040101
  9. BUPROPION HYDROCHLORIDE [Concomitant]
     Indication: DEPRESSION
  10. SEROQUEL [Concomitant]
     Indication: ANXIETY
     Dosage: UNK
     Dates: start: 20050101, end: 20080101
  11. SERTRALINE [Concomitant]
     Dosage: 100 MG, UNK
  12. GEODON [Concomitant]
     Indication: ANXIETY
     Dosage: UNK
     Dates: start: 20040101
  13. ALPRAZOLAM [Concomitant]
     Indication: ANXIETY
     Dosage: UNK
     Dates: start: 20060101, end: 20080101

REACTIONS (14)
  - CHOLELITHIASIS [None]
  - NAUSEA [None]
  - CONSTIPATION [None]
  - DIARRHOEA [None]
  - VOMITING [None]
  - ABDOMINAL PAIN [None]
  - DEHYDRATION [None]
  - FLATULENCE [None]
  - DEPRESSION [None]
  - CHOLECYSTITIS CHRONIC [None]
  - DYSPEPSIA [None]
  - ANXIETY [None]
  - SCAR [None]
  - ABDOMINAL DISTENSION [None]
